FAERS Safety Report 12830400 (Version 3)
Quarter: 2018Q3

REPORT INFORMATION
  Report Type: Spontaneous
  Country: US (occurrence: US)
  Receive Date: 20161007
  Receipt Date: 20180914
  Transmission Date: 20181010
  Serious: No
  Sender: FDA-Public Use
  Company Number: US-SA-2016SA130309

PATIENT
  Age: 65 Year
  Sex: Female

DRUGS (13)
  1. AUBAGIO [Suspect]
     Active Substance: TERIFLUNOMIDE
     Indication: ARTHROPATHY
     Dosage: UNK UNK,QD
     Route: 048
     Dates: start: 20160709
  2. NEURONTIN [Concomitant]
     Active Substance: GABAPENTIN
     Dosage: 900 MG,TID
     Route: 048
  3. NORVASC [Concomitant]
     Active Substance: AMLODIPINE BESYLATE
     Dosage: 1 DF,QD
     Route: 048
  4. HYZAAR [Concomitant]
     Active Substance: HYDROCHLOROTHIAZIDE\LOSARTAN POTASSIUM
     Dosage: 1 DF,QD
     Route: 048
  5. LOPID [Concomitant]
     Active Substance: GEMFIBROZIL
     Dosage: 1 DF,BID
     Route: 048
  6. LYRICA [Concomitant]
     Active Substance: PREGABALIN
     Dosage: 1 DF,BID
     Route: 048
  7. LIPITOR [Concomitant]
     Active Substance: ATORVASTATIN CALCIUM
     Dosage: 1 DF,QD
     Route: 048
  8. ARTHROTEC [Concomitant]
     Active Substance: DICLOFENAC SODIUM\MISOPROSTOL
     Dosage: 1 DF,TID
     Route: 048
  9. AUBAGIO [Suspect]
     Active Substance: TERIFLUNOMIDE
     Indication: MULTIPLE SCLEROSIS
     Dosage: 14 MG, QD
     Route: 048
     Dates: start: 2017, end: 201802
  10. KLONOPIN [Concomitant]
     Active Substance: CLONAZEPAM
     Dosage: 1 DF,BID
     Route: 048
  11. OMEPRAZOLE. [Concomitant]
     Active Substance: OMEPRAZOLE
     Dosage: 1 DF,QD
     Route: 048
  12. FOSAMAX [Concomitant]
     Active Substance: ALENDRONATE SODIUM
     Dosage: 1 DF,QW
     Route: 048
  13. AMPYRA [Concomitant]
     Active Substance: DALFAMPRIDINE
     Dosage: 1 DF,BID
     Route: 048

REACTIONS (6)
  - Hypoaesthesia oral [Unknown]
  - Alopecia [Unknown]
  - Skin haemorrhage [Unknown]
  - Pruritus generalised [Unknown]
  - Rash [Unknown]
  - Pruritus [Unknown]

NARRATIVE: CASE EVENT DATE: 20160713
